FAERS Safety Report 6326437-1 (Version None)
Quarter: 2009Q3

REPORT INFORMATION
  Report Type: 
  Country: None (occurrence: None)
  Receive Date: 20090825
  Receipt Date: 20090814
  Transmission Date: 20100115
  Serious: Yes (Hospitalization)
  Sender: FDA-Public Use
  Company Number: US-BIOGENIDEC-2009BI025209

PATIENT
  Age: 56 Year
  Sex: Female

DRUGS (2)
  1. AVONEX [Suspect]
     Indication: MULTIPLE SCLEROSIS
     Route: 030
     Dates: start: 20000705, end: 20070703
  2. AVONEX [Suspect]
     Route: 030
     Dates: start: 20090801

REACTIONS (3)
  - COLON CANCER RECURRENT [None]
  - NAUSEA [None]
  - WHITE BLOOD CELL COUNT DECREASED [None]
